FAERS Safety Report 21479235 (Version 1)
Quarter: 2022Q4

REPORT INFORMATION
  Report Type: Spontaneous
  Country: US (occurrence: US)
  Receive Date: 20221019
  Receipt Date: 20221019
  Transmission Date: 20230113
  Serious: No
  Sender: FDA-Public Use
  Company Number: US-SA-SAC20221013001438

PATIENT
  Sex: Female

DRUGS (3)
  1. DUPIXENT [Suspect]
     Active Substance: DUPILUMAB
     Indication: Dermatitis atopic
     Dosage: 300 MG, QOW
     Route: 058
     Dates: start: 20191213
  2. BUPROPION [Concomitant]
     Active Substance: BUPROPION
     Dosage: 150 MG
  3. SUMATRIPTAN [Concomitant]
     Active Substance: SUMATRIPTAN
     Indication: Migraine
     Dosage: 50 MG

REACTIONS (5)
  - Dermatitis atopic [Unknown]
  - Discomfort [Unknown]
  - Impaired quality of life [Unknown]
  - Rash [Unknown]
  - Product dose omission issue [Unknown]
